FAERS Safety Report 9898433 (Version 1)
Quarter: 2014Q1

REPORT INFORMATION
  Report Type: Spontaneous
  Country: ES (occurrence: ES)
  Receive Date: 20140214
  Receipt Date: 20140214
  Transmission Date: 20141002
  Serious: Yes (Other)
  Sender: FDA-Public Use
  Company Number: ES-PFIZER INC-2014038125

PATIENT
  Age: 38 Year
  Sex: Male

DRUGS (1)
  1. SILDENAFIL CITRATE [Suspect]
     Dosage: 25 MG AND 50 MG (1/2 TABLET)
     Route: 048
     Dates: start: 2008, end: 2010

REACTIONS (4)
  - Palpitations [Unknown]
  - Chest pain [Unknown]
  - Respiratory tract congestion [Unknown]
  - Dyspnoea [Unknown]
